FAERS Safety Report 10279941 (Version 1)
Quarter: 2014Q3

REPORT INFORMATION
  Report Type: Spontaneous
  Country: BR (occurrence: BR)
  Receive Date: 20140707
  Receipt Date: 20140707
  Transmission Date: 20150326
  Serious: Yes (Other)
  Sender: FDA-Public Use
  Company Number: BR-PFIZER INC-2014182720

PATIENT
  Age: 68 Year
  Sex: Female
  Weight: 65 kg

DRUGS (1)
  1. FRONTAL [Suspect]
     Active Substance: ALPRAZOLAM
     Indication: PANIC DISORDER
     Dosage: 0.25 MG, 2X/DAY
     Route: 048
     Dates: start: 1989

REACTIONS (5)
  - Tremor [Unknown]
  - Blood potassium decreased [Unknown]
  - Crying [Unknown]
  - Blindness transient [Unknown]
  - Nervousness [Unknown]
